FAERS Safety Report 23672653 (Version 1)
Quarter: 2024Q1

REPORT INFORMATION
  Report Type: Spontaneous
  Country: US (occurrence: None)
  Receive Date: 20240325
  Receipt Date: 20240325
  Transmission Date: 20240410
  Serious: Yes (Hospitalization)
  Sender: FDA-Public Use
  Company Number: None

PATIENT
  Age: 59 Year
  Sex: Female

DRUGS (1)
  1. HUMIRA [Suspect]
     Active Substance: ADALIMUMAB
     Indication: Psoriasis
     Dosage: FREQUENCY : EVERY OTHER WEEK;?
     Route: 058
     Dates: start: 202004

REACTIONS (5)
  - Urinary tract infection [None]
  - Amnesia [None]
  - Confusional state [None]
  - Respiratory arrest [None]
  - Respiratory failure [None]

NARRATIVE: CASE EVENT DATE: 20240311
